FAERS Safety Report 16258105 (Version 1)
Quarter: 2019Q2

REPORT INFORMATION
  Report Type: Report from Study
  Country: BD (occurrence: BD)
  Receive Date: 20190430
  Receipt Date: 20190430
  Transmission Date: 20190711
  Serious: Yes (Other)
  Sender: FDA-Public Use
  Company Number: BD-SA-2018SA244764

PATIENT
  Age: 65 Year
  Sex: Female
  Weight: 73 kg

DRUGS (1)
  1. INSULIN GLARGINE [Suspect]
     Active Substance: INSULIN GLARGINE
     Dosage: UNK
     Route: 065
     Dates: start: 20080619

REACTIONS (9)
  - Diabetes mellitus [Unknown]
  - Angina pectoris [Unknown]
  - Gait inability [Unknown]
  - Ageusia [Unknown]
  - Weight abnormal [Unknown]
  - Renal disorder [Unknown]
  - Pain [Unknown]
  - Eating disorder [Unknown]
  - Pollakiuria [Unknown]
